FAERS Safety Report 10752044 (Version 1)
Quarter: 2015Q1

REPORT INFORMATION
  Report Type: Report from Study
  Country: US (occurrence: US)
  Receive Date: 20150130
  Receipt Date: 20150130
  Transmission Date: 20150721
  Serious: Yes (Hospitalization)
  Sender: FDA-Public Use
  Company Number: US-ABBVIE-15P-163-1337210-00

PATIENT
  Age: 0 Day
  Sex: Male
  Weight: 4.54 kg

DRUGS (7)
  1. HUMIRA [Suspect]
     Active Substance: ADALIMUMAB
     Indication: MATERNAL EXPOSURE TIMING UNSPECIFIED
     Route: 064
  2. VITAMIN D [Concomitant]
     Active Substance: CHOLECALCIFEROL
     Indication: MATERNAL EXPOSURE TIMING UNSPECIFIED
  3. VANCO [Concomitant]
     Active Substance: VANCOMYCIN
     Indication: MATERNAL EXPOSURE TIMING UNSPECIFIED
  4. MERCAPTOPURINE. [Concomitant]
     Active Substance: MERCAPTOPURINE
     Indication: MATERNAL EXPOSURE TIMING UNSPECIFIED
  5. FLAGYL [Concomitant]
     Active Substance: METRONIDAZOLE\METRONIDAZOLE HYDROCHLORIDE
     Indication: MATERNAL EXPOSURE TIMING UNSPECIFIED
  6. LEVOTHYROXINE [Concomitant]
     Active Substance: LEVOTHYROXINE
     Indication: MATERNAL EXPOSURE TIMING UNSPECIFIED
  7. MULTIVITAMIN [Concomitant]
     Active Substance: VITAMINS
     Indication: MATERNAL EXPOSURE TIMING UNSPECIFIED

REACTIONS (4)
  - Feeding disorder neonatal [Recovered/Resolved]
  - Premature baby [Recovered/Resolved]
  - Exposure during breast feeding [Unknown]
  - Foetal exposure during pregnancy [Unknown]

NARRATIVE: CASE EVENT DATE: 20141001
